FAERS Safety Report 25096334 (Version 2)
Quarter: 2025Q1

REPORT INFORMATION
  Report Type: Spontaneous
  Country: PL (occurrence: PL)
  Receive Date: 20250319
  Receipt Date: 20250326
  Transmission Date: 20250409
  Serious: Yes (Death, Other)
  Sender: NOVARTIS
  Company Number: PL-002147023-NVSC2025PL045629

PATIENT
  Age: 61 Year
  Sex: Female

DRUGS (4)
  1. KISQALI [Suspect]
     Active Substance: RIBOCICLIB
     Indication: HER2 negative breast cancer
     Dosage: 600 MG, QD (EVERY 28 DAYS)
     Route: 065
     Dates: start: 20181217
  2. KISQALI [Suspect]
     Active Substance: RIBOCICLIB
     Dosage: 400 MG, QD
     Route: 065
  3. ZOLEDRONIC ACID [Suspect]
     Active Substance: ZOLEDRONIC ACID
     Indication: Breast cancer
     Route: 065
  4. LETROZOLE [Suspect]
     Active Substance: LETROZOLE
     Indication: HER2 negative breast cancer
     Dosage: 2.5 MG, QD
     Route: 065
     Dates: start: 20181217

REACTIONS (15)
  - Death [Fatal]
  - Pleural effusion [Unknown]
  - Post procedural inflammation [Unknown]
  - Purulent discharge [Unknown]
  - Pyrexia [Unknown]
  - Depressed mood [Unknown]
  - Dysphagia [Unknown]
  - Body mass index decreased [Unknown]
  - Transaminases increased [Unknown]
  - Asthenia [Unknown]
  - Hypophagia [Unknown]
  - Catheter site discharge [Unknown]
  - General physical health deterioration [Unknown]
  - Headache [Unknown]
  - Osteosclerosis [Unknown]

NARRATIVE: CASE EVENT DATE: 20230701
